FAERS Safety Report 9982808 (Version 1)
Quarter: 2014Q1

REPORT INFORMATION
  Report Type: Report from Study
  Country: US (occurrence: US)
  Receive Date: 20140307
  Receipt Date: 20140307
  Transmission Date: 20141002
  Serious: No
  Sender: FDA-Public Use
  Company Number: US-ABBVIE-13P-163-1176981-00

PATIENT
  Age: 50 Year
  Sex: Female

DRUGS (6)
  1. HUMIRA [Suspect]
     Indication: RHEUMATOID ARTHRITIS
     Dates: start: 20131202, end: 20131202
  2. AMBIEN [Concomitant]
     Indication: INSOMNIA
     Dosage: AT BEDTIME, AS NEEDED
  3. OXYCONTIN [Concomitant]
     Indication: PAIN
     Dosage: EVERY 4-6 HOURS
  4. AMITRIPTYLINE [Concomitant]
     Indication: MUSCLE SPASMS
     Dosage: 1-2 AT BEDTIME
  5. OMEPRAZOLE [Concomitant]
     Indication: GASTRIC DISORDER
  6. CYCLOBENZAPRINE [Concomitant]
     Indication: MUSCLE SPASMS

REACTIONS (2)
  - Nausea [Not Recovered/Not Resolved]
  - Upper respiratory tract infection [Not Recovered/Not Resolved]
